FAERS Safety Report 4921090-3 (Version None)
Quarter: 2006Q1

REPORT INFORMATION
  Report Type: 
  Country: None (occurrence: None)
  Receive Date: 20060223
  Receipt Date: 20051005
  Transmission Date: 20060701
  Serious: Yes (Hospitalization, Other)
  Sender: FDA-Public Use
  Company Number: US-MERCK-0510USA06166

PATIENT
  Age: 55 Year
  Sex: Female
  Weight: 68 kg

DRUGS (22)
  1. AMBIEN [Concomitant]
     Indication: SLEEP DISORDER THERAPY
     Route: 065
     Dates: start: 19981201, end: 20040601
  2. PAXIL [Concomitant]
     Indication: DEPRESSION
     Route: 065
     Dates: start: 19981201
  3. NORFLEX [Concomitant]
     Indication: MUSCLE RELAXANT THERAPY
     Route: 065
     Dates: start: 19970410, end: 20020612
  4. CLARITIN [Concomitant]
     Indication: HYPERSENSITIVITY
     Route: 065
     Dates: start: 19970410, end: 20001203
  5. SYNTHROID [Concomitant]
     Indication: HYPOTHYROIDISM
     Route: 065
     Dates: start: 19970310
  6. ZIAC [Concomitant]
     Indication: HYPERTENSION
     Route: 065
     Dates: start: 19990405, end: 20020513
  7. FIORICET TABLETS [Concomitant]
     Indication: MIGRAINE
     Route: 065
     Dates: start: 19960817, end: 20041216
  8. ADALAT [Concomitant]
     Indication: ANGINA PECTORIS
     Route: 065
     Dates: start: 19981216, end: 20030124
  9. NORVASC [Concomitant]
     Indication: CARDIAC DISORDER
     Route: 065
     Dates: start: 19960908, end: 20040609
  10. GLUCOVANCE [Concomitant]
     Indication: DIABETES MELLITUS
     Route: 065
     Dates: start: 19970101
  11. TRANSENE [Concomitant]
     Route: 065
  12. VIOXX [Suspect]
     Indication: ARTHRITIS
     Route: 048
     Dates: start: 19990101, end: 20030101
  13. VIOXX [Suspect]
     Indication: BACK PAIN
     Route: 048
     Dates: start: 19990101, end: 20030101
  14. HYZAAR [Concomitant]
     Route: 048
  15. ASPIRIN [Concomitant]
     Route: 065
  16. TYLENOL (CAPLET) [Concomitant]
     Route: 065
     Dates: start: 19870101
  17. ULTRACET [Concomitant]
     Route: 065
     Dates: start: 19870101
  18. PRILOSEC [Concomitant]
     Indication: GASTROOESOPHAGEAL REFLUX DISEASE
     Route: 065
     Dates: start: 19981214, end: 20010112
  19. PRILOSEC [Concomitant]
     Indication: ULCER
     Route: 065
     Dates: start: 19981214, end: 20010112
  20. CIPRO [Concomitant]
     Indication: ANTIBIOTIC LEVEL THERAPEUTIC
     Route: 065
     Dates: start: 19960908, end: 20040817
  21. XANAX [Concomitant]
     Indication: ANXIETY DISORDER
     Route: 065
     Dates: start: 19981201, end: 20041029
  22. XANAX [Concomitant]
     Indication: PANIC ATTACK
     Route: 065
     Dates: start: 19981201, end: 20041029

REACTIONS (13)
  - CARDIAC DISORDER [None]
  - CEREBROVASCULAR ACCIDENT [None]
  - CONVULSION [None]
  - DYSPEPSIA [None]
  - DYSPHAGIA [None]
  - GASTROINTESTINAL MOTILITY DISORDER [None]
  - GLAUCOMA [None]
  - OSTEOARTHRITIS [None]
  - OVERDOSE [None]
  - PSYCHOTIC DISORDER [None]
  - RHEUMATOID ARTHRITIS [None]
  - SLEEP APNOEA SYNDROME [None]
  - SYNCOPE [None]
